FAERS Safety Report 5633616-5 (Version None)
Quarter: 2008Q1

REPORT INFORMATION
  Report Type: 
  Country: None (occurrence: None)
  Receive Date: 20080221
  Receipt Date: 20080214
  Transmission Date: 20080703
  Serious: Yes (Other)
  Sender: FDA-Public Use
  Company Number: US-ASTRAZENECA-2008UW03122

PATIENT
  Age: 73 Year
  Sex: Female
  Weight: 76.7 kg

DRUGS (13)
  1. ARIMIDEX [Suspect]
     Indication: BREAST CANCER
     Route: 048
     Dates: start: 20070101
  2. DIOVAN [Concomitant]
  3. BENAZEPRIL HYDROCHLORIDE [Concomitant]
  4. LOVASTATIN [Concomitant]
  5. LYRICA [Concomitant]
  6. ACTONEL [Concomitant]
  7. LEVOXYL [Concomitant]
  8. GLYBURIDE [Concomitant]
  9. VICODIN [Concomitant]
  10. OXYBUTIN [Concomitant]
  11. RANITIDINE [Concomitant]
  12. INSULIN [Concomitant]
  13. NITROGLYCERIN [Concomitant]

REACTIONS (6)
  - ARTHRALGIA [None]
  - GAIT DISTURBANCE [None]
  - IMPAIRED HEALING [None]
  - MUSCULOSKELETAL PAIN [None]
  - ONYCHALGIA [None]
  - SURGERY [None]
